FAERS Safety Report 10519567 (Version 3)
Quarter: 2015Q1

REPORT INFORMATION
  Report Type: Spontaneous
  Country: JP (occurrence: JP)
  Receive Date: 20141015
  Receipt Date: 20150206
  Transmission Date: 20150720
  Serious: Yes (Hospitalization)
  Sender: FDA-Public Use
  Company Number: JP-SA-2014SA140138

PATIENT
  Age: 40 Year
  Sex: Female

DRUGS (3)
  1. BENZODIAZEPINE DERIVATIVES [Concomitant]
     Active Substance: BENZODIAZEPINE
     Indication: DEPRESSION
  2. FUROSEMIDE. [Suspect]
     Active Substance: FUROSEMIDE
     Indication: WEIGHT DECREASED
     Route: 065
  3. HALOPERIDOL. [Concomitant]
     Active Substance: HALOPERIDOL

REACTIONS (8)
  - Myoglobin blood increased [Recovered/Resolved]
  - Rhabdomyolysis [Recovered/Resolved]
  - Drug abuse [Unknown]
  - Disability [Recovered/Resolved]
  - Blood creatine phosphokinase increased [Recovered/Resolved]
  - Myoglobinuria [Recovered/Resolved]
  - Beta 2 microglobulin urine increased [Recovered/Resolved]
  - Hypokalaemia [Unknown]
